FAERS Safety Report 6915342-5 (Version None)
Quarter: 2010Q3

REPORT INFORMATION
  Report Type: 
  Country: None (occurrence: None)
  Receive Date: 20100809
  Receipt Date: 20091102
  Transmission Date: 20110219
  Serious: No
  Sender: FDA-Public Use
  Company Number: US-ABBOTT-09P-163-0606515-00

PATIENT
  Sex: Female
  Weight: 69.462 kg

DRUGS (19)
  1. DEPAKOTE ER [Suspect]
     Indication: MIGRAINE
     Dates: start: 20030101, end: 20030101
  2. DEPAKOTE ER [Suspect]
     Dates: start: 20090801, end: 20090801
  3. PROTONIX [Concomitant]
     Indication: PROPHYLAXIS AGAINST GASTROINTESTINAL ULCER
  4. BENICAR [Concomitant]
     Indication: HYPERTENSION
  5. PREMARIN [Concomitant]
     Indication: HORMONE REPLACEMENT THERAPY
  6. CYMBALTA [Concomitant]
     Indication: DEPRESSION
  7. CYMBALTA [Concomitant]
     Indication: MIGRAINE
  8. CELEBREX [Concomitant]
     Indication: PAIN
  9. ZANAFLEX [Concomitant]
     Indication: ARTHRALGIA
  10. ATIVAN [Concomitant]
     Indication: INSOMNIA
  11. LASIX [Concomitant]
     Indication: OEDEMA
  12. POTASSIUM [Concomitant]
     Indication: ELECTROLYTE SUBSTITUTION THERAPY
  13. ZOMIG [Concomitant]
     Indication: MIGRAINE
  14. FROVA [Concomitant]
     Indication: MIGRAINE
  15. CARDIZEM [Concomitant]
     Indication: HEART RATE IRREGULAR
  16. PROVENTIL [Concomitant]
     Indication: ASTHMA
  17. ASMANEX TWISTHALER [Concomitant]
     Indication: ASTHMA
  18. NASONEX [Concomitant]
     Indication: ASTHMA
  19. ASTELIN [Concomitant]
     Indication: ASTHMA

REACTIONS (3)
  - ALOPECIA [None]
  - PRURITUS [None]
  - RASH GENERALISED [None]
